FAERS Safety Report 11590535 (Version 3)
Quarter: 2016Q2

REPORT INFORMATION
  Report Type: Spontaneous
  Country: JP (occurrence: JP)
  Receive Date: 20151002
  Receipt Date: 20160421
  Transmission Date: 20160815
  Serious: Yes (Hospitalization, Other)
  Sender: FDA-Public Use
  Company Number: JP-GLAXOSMITHKLINE-JP2015JPN138552

PATIENT
  Age: 34 Year
  Sex: Female
  Weight: 53 kg

DRUGS (2)
  1. DEPAKENE [Concomitant]
     Active Substance: VALPROIC ACID
     Dosage: UNK
  2. LAMICTAL [Suspect]
     Active Substance: LAMOTRIGINE
     Indication: EPILEPSY
     Dosage: 25 MG, 1D
     Route: 048
     Dates: start: 20140924, end: 20141024

REACTIONS (12)
  - Decreased appetite [Unknown]
  - Generalised erythema [Unknown]
  - Lymphadenopathy [Recovered/Resolved]
  - Lip erosion [Unknown]
  - Toxic epidermal necrolysis [Recovered/Resolved]
  - Oropharyngeal pain [Recovered/Resolved]
  - Oral mucosa erosion [Unknown]
  - Rash [Unknown]
  - Pyrexia [Recovered/Resolved]
  - Malaise [Unknown]
  - Enanthema [Unknown]
  - Pain [Recovered/Resolved]

NARRATIVE: CASE EVENT DATE: 20141024
